FAERS Safety Report 9175519 (Version 6)
Quarter: 2014Q2

REPORT INFORMATION
  Report Type: Report from Study
  Country: CA (occurrence: CA)
  Receive Date: 20130320
  Receipt Date: 20140630
  Transmission Date: 20141212
  Serious: Yes (Death, Hospitalization, Other)
  Sender: FDA-Public Use
  Company Number: CA-ROCHE-1203836

PATIENT
  Sex: Female
  Weight: 68 kg

DRUGS (24)
  1. RITUXAN [Suspect]
     Indication: RHEUMATOID ARTHRITIS
     Route: 042
     Dates: start: 20110531, end: 20131209
  2. RITUXAN [Suspect]
     Route: 042
     Dates: start: 20120823
  3. RITUXAN [Suspect]
     Route: 042
     Dates: start: 20130411
  4. PREDNISONE [Concomitant]
  5. ASPIRIN [Concomitant]
  6. ACTONEL [Concomitant]
  7. RIVA SENNA [Concomitant]
  8. DOCUSATE SODIUM [Concomitant]
  9. RANITIDINE [Concomitant]
  10. ATENOLOL [Concomitant]
  11. CYMBALTA [Concomitant]
  12. HYDROXYCHLOROQUINE [Concomitant]
  13. CLONAZEPAM [Concomitant]
     Route: 065
  14. NEXIUM [Concomitant]
  15. EURO D [Concomitant]
  16. EZETROL [Concomitant]
  17. RISEDRONATE [Concomitant]
  18. APO-FOLIC [Concomitant]
  19. MIRAPEX [Concomitant]
  20. METHOTREXATE [Concomitant]
  21. OXYCONTIN [Concomitant]
  22. DIPHENHYDRAMINE HCL [Concomitant]
     Indication: PREMEDICATION
     Route: 048
     Dates: start: 20110331
  23. ACETAMINOPHEN [Concomitant]
     Indication: PREMEDICATION
     Route: 048
     Dates: start: 20110531
  24. METHYLPREDNISOLONE [Concomitant]
     Indication: PREMEDICATION
     Route: 042
     Dates: start: 20110531

REACTIONS (9)
  - Pyrexia [Unknown]
  - Lung disorder [Unknown]
  - Confusional state [Unknown]
  - Bronchitis [Unknown]
  - Acute pulmonary oedema [Unknown]
  - Cataract [Unknown]
  - Arthralgia [Not Recovered/Not Resolved]
  - Pneumonia [Fatal]
  - Multiple sclerosis [Unknown]
